FAERS Safety Report 7251320-7 (Version None)
Quarter: 2011Q1

REPORT INFORMATION
  Report Type: 
  Country: None (occurrence: None)
  Receive Date: 20110119
  Receipt Date: 20110111
  Transmission Date: 20110831
  Serious: Yes (Death)
  Sender: FDA-Public Use
  Company Number: UTC-004246

PATIENT
  Age: 42 Year
  Sex: Female
  Weight: 53.5 kg

DRUGS (2)
  1. REMODULIN [Suspect]
     Indication: COR PULMONALE CHRONIC
     Dosage: SUBCUTANEOUS
     Route: 058
     Dates: start: 20100108, end: 20100111
  2. TRACLEER [Concomitant]

REACTIONS (1)
  - DEATH [None]
